FAERS Safety Report 23433574 (Version 5)
Quarter: 2024Q4

REPORT INFORMATION
  Report Type: Spontaneous
  Country: US (occurrence: US)
  Receive Date: 20240123
  Receipt Date: 20241126
  Transmission Date: 20250115
  Serious: Yes (Other)
  Sender: PFIZER
  Company Number: US-PFIZER INC-PV202300154466

PATIENT
  Age: 67 Year
  Sex: Male
  Weight: 105.85 kg

DRUGS (12)
  1. INLYTA [Suspect]
     Active Substance: AXITINIB
     Indication: Renal cell carcinoma
     Dosage: 3 MG, 2X/DAY
     Route: 048
     Dates: start: 20220802
  2. INLYTA [Suspect]
     Active Substance: AXITINIB
     Indication: Renal cancer stage IV
  3. INLYTA [Suspect]
     Active Substance: AXITINIB
     Indication: Renal cancer
  4. NORVASC [Concomitant]
     Active Substance: AMLODIPINE BESYLATE
     Dosage: 0.5 DF, 1X/DAY [0.5 TAB ONE A DAY]
  5. LEVOTHYROXINE SODIUM [Concomitant]
     Active Substance: LEVOTHYROXINE SODIUM
     Dosage: UNK
  6. AMLODIPINE [Concomitant]
     Active Substance: AMLODIPINE BESYLATE
     Dosage: UNK
  7. CYCLOBENZAPRINE [Concomitant]
     Active Substance: CYCLOBENZAPRINE
     Dosage: UNK
  8. TRAMADOL HCL [Concomitant]
     Active Substance: TRAMADOL HYDROCHLORIDE
     Dosage: UNK
  9. LIDOCAINE\PRILOCAINE [Concomitant]
     Active Substance: LIDOCAINE\PRILOCAINE
     Dosage: UNK
  10. PETROLEUM JELLY [Concomitant]
     Active Substance: PETROLATUM
     Dosage: UNK
     Dates: start: 20220802
  11. METAMUCIL FIBER GUMMIES [Concomitant]
     Dosage: UNK
  12. CRANBERRY [Concomitant]
     Active Substance: CRANBERRY
     Dosage: UNK
     Dates: start: 202202

REACTIONS (3)
  - Hip arthroplasty [Unknown]
  - Hypoacusis [Unknown]
  - Rash [Not Recovered/Not Resolved]

NARRATIVE: CASE EVENT DATE: 20220802
